FAERS Safety Report 7914668-6 (Version None)
Quarter: 2011Q4

REPORT INFORMATION
  Report Type: 
  Country: None (occurrence: None)
  Receive Date: 20111115
  Receipt Date: 20111108
  Transmission Date: 20120403
  Serious: Yes (Other)
  Sender: FDA-Public Use
  Company Number: PHEH2011US008945

PATIENT
  Sex: Female

DRUGS (1)
  1. RECLAST [Suspect]
     Dosage: UNK
     Route: 042

REACTIONS (6)
  - DISORIENTATION [None]
  - INFLUENZA LIKE ILLNESS [None]
  - PYREXIA [None]
  - CONFUSIONAL STATE [None]
  - PAIN [None]
  - FATIGUE [None]
